FAERS Safety Report 10477904 (Version 1)
Quarter: 2014Q3

REPORT INFORMATION
  Report Type: Spontaneous
  Country: DE (occurrence: DE)
  Receive Date: 20140926
  Receipt Date: 20140926
  Transmission Date: 20150326
  Serious: Yes (Other)
  Sender: FDA-Public Use
  Company Number: DE-WATSON-2014-20449

PATIENT
  Age: 1 Day
  Sex: Male
  Weight: 2 kg

DRUGS (6)
  1. DOXEPIN (WATSON LABORATORIES) [Suspect]
     Active Substance: DOXEPIN
     Dosage: 50 MG, DAILY
     Route: 064
     Dates: end: 201308
  2. ZELDOX [Suspect]
     Active Substance: ZIPRASIDONE
     Indication: SCHIZOPHRENIA
     Dosage: 60 MG, DAILY
     Route: 064
     Dates: start: 20130127, end: 20130921
  3. VENLAFAXIN DURA [Suspect]
     Active Substance: VENLAFAXINE HYDROCHLORIDE
     Indication: EATING DISORDER
     Dosage: 75 MG, DAILY
     Route: 064
     Dates: start: 20130127, end: 20130921
  4. AMITRIPTYLIN NEURAXPHARM [Suspect]
     Active Substance: AMITRIPTYLINE
     Indication: DEPRESSION
     Dosage: 100 MG, DAILY
     Route: 064
  5. AMITRIPTYLIN [Suspect]
     Active Substance: AMITRIPTYLINE
     Indication: DEPRESSION
     Dosage: 75 MG, DAILY
     Route: 064
     Dates: start: 20130127, end: 20130921
  6. VENLAFAXINE (UNKNOWN) [Suspect]
     Active Substance: VENLAFAXINE HYDROCHLORIDE
     Indication: EATING DISORDER
     Dosage: 75 MG, BID
     Route: 064
     Dates: start: 20130127, end: 20130921

REACTIONS (5)
  - Meconium in amniotic fluid [Unknown]
  - Neonatal respiratory distress syndrome [Recovered/Resolved]
  - Foetal exposure during pregnancy [Unknown]
  - Sedation [Recovered/Resolved]
  - Feeding disorder neonatal [Recovered/Resolved]

NARRATIVE: CASE EVENT DATE: 20130921
